FAERS Safety Report 11282594 (Version 2)
Quarter: 2015Q4

REPORT INFORMATION
  Report Type: Report from Study
  Country: CA (occurrence: CA)
  Receive Date: 20150720
  Receipt Date: 20151016
  Transmission Date: 20160304
  Serious: Yes (Other)
  Sender: FDA-Public Use
  Company Number: CA-ROCHE-1594673

PATIENT
  Age: 43 Year
  Sex: Female

DRUGS (7)
  1. FERROUS SULFATE [Concomitant]
     Active Substance: FERROUS SULFATE\FERROUS SULFATE, DRIED
  2. PANTOLOC [Concomitant]
     Active Substance: PANTOPRAZOLE SODIUM
  3. NASONEX [Concomitant]
     Active Substance: MOMETASONE FUROATE
  4. ZENHALE [Concomitant]
     Active Substance: FORMOTEROL FUMARATE\MOMETASONE FUROATE
  5. CETIRIZINE [Concomitant]
     Active Substance: CETIRIZINE HYDROCHLORIDE
  6. XOLAIR [Suspect]
     Active Substance: OMALIZUMAB
     Route: 058
     Dates: start: 20150702
  7. XOLAIR [Suspect]
     Active Substance: OMALIZUMAB
     Indication: MASTOCYTOSIS
     Route: 058
     Dates: start: 20150602

REACTIONS (4)
  - Product use issue [Unknown]
  - Anaphylactic reaction [Recovered/Resolved]
  - Musculoskeletal discomfort [Unknown]
  - Fatigue [Unknown]

NARRATIVE: CASE EVENT DATE: 20150602
